FAERS Safety Report 19804986 (Version 8)
Quarter: 2022Q2

REPORT INFORMATION
  Report Type: Spontaneous
  Country: US (occurrence: US)
  Receive Date: 20210908
  Receipt Date: 20220405
  Transmission Date: 20220720
  Serious: Yes (Hospitalization)
  Sender: FDA-Public Use
  Company Number: US-BIOCODEX2-2021001082

PATIENT

DRUGS (26)
  1. DIACOMIT [Suspect]
     Active Substance: STIRIPENTOL
     Indication: Severe myoclonic epilepsy of infancy
     Dosage: 2 SACHETS OF 500 MG IN THE MORNING AND 3 SACHETS OF 500 MG AT NIGHT
     Route: 065
     Dates: start: 20210325, end: 20220222
  2. DIACOMIT [Suspect]
     Active Substance: STIRIPENTOL
     Dosage: 2500 MG, QD
     Route: 065
     Dates: start: 20210325
  3. CLOBAZAM [Concomitant]
     Active Substance: CLOBAZAM
     Indication: Severe myoclonic epilepsy of infancy
     Dosage: UNK
     Route: 065
     Dates: end: 20211212
  4. CLOBAZAM [Concomitant]
     Active Substance: CLOBAZAM
     Route: 065
     Dates: end: 20211212
  5. ACETAMINOPHEN [Concomitant]
     Active Substance: ACETAMINOPHEN
     Indication: Product used for unknown indication
     Dosage: UNK
     Route: 065
  6. ACETAMINOPHEN [Concomitant]
     Active Substance: ACETAMINOPHEN
     Route: 065
  7. CLONAZEPAM [Concomitant]
     Active Substance: CLONAZEPAM
     Indication: Product used for unknown indication
     Dosage: UNK
     Route: 065
  8. CLONAZEPAM [Concomitant]
     Active Substance: CLONAZEPAM
     Route: 065
  9. DEPAKOTE [Concomitant]
     Active Substance: DIVALPROEX SODIUM
     Indication: Product used for unknown indication
     Dosage: 4 CAPSULES OF 125 MG TWICE A DAY
     Route: 065
  10. DEPAKOTE [Concomitant]
     Active Substance: DIVALPROEX SODIUM
     Dosage: 2 CAPSULES OF 125 MG TWICE A DAY
     Route: 065
  11. FINTEPLA [Concomitant]
     Active Substance: FENFLURAMINE
     Indication: Product used for unknown indication
     Dosage: UNK
     Route: 065
  12. FINTEPLA [Concomitant]
     Active Substance: FENFLURAMINE
     Route: 065
  13. IBUPROFEN [Concomitant]
     Active Substance: IBUPROFEN
     Indication: Product used for unknown indication
     Dosage: UNK
     Route: 065
  14. IBUPROFEN [Concomitant]
     Active Substance: IBUPROFEN
     Route: 065
  15. LANTUS [Concomitant]
     Active Substance: INSULIN GLARGINE
     Indication: Product used for unknown indication
     Dosage: UNK
     Route: 065
  16. LANTUS [Concomitant]
     Active Substance: INSULIN GLARGINE
     Route: 065
  17. LEVOTHYROXINE [Concomitant]
     Active Substance: LEVOTHYROXINE
     Indication: Product used for unknown indication
     Dosage: UNK
     Route: 065
  18. LEVOTHYROXINE [Concomitant]
     Active Substance: LEVOTHYROXINE
     Route: 065
  19. MEDROXYPROGESTERONE [Concomitant]
     Active Substance: MEDROXYPROGESTERONE
     Indication: Product used for unknown indication
     Dosage: UNK
     Route: 065
  20. MEDROXYPROGESTERONE [Concomitant]
     Active Substance: MEDROXYPROGESTERONE
     Route: 065
  21. OZEMPIC [Concomitant]
     Active Substance: SEMAGLUTIDE
     Indication: Product used for unknown indication
     Dosage: UNK
     Route: 065
  22. OZEMPIC [Concomitant]
     Active Substance: SEMAGLUTIDE
     Route: 065
  23. PRAVASTATIN [Concomitant]
     Active Substance: PRAVASTATIN
     Indication: Product used for unknown indication
     Dosage: UNK
     Route: 065
  24. PRAVASTATIN [Concomitant]
     Active Substance: PRAVASTATIN
     Route: 065
  25. MEDROXYPROGESTERONE ACETATE [Concomitant]
     Active Substance: MEDROXYPROGESTERONE ACETATE
     Indication: Product used for unknown indication
     Route: 065
  26. ACETA [PARACETAMOL] [Concomitant]
     Indication: Product used for unknown indication
     Route: 065

REACTIONS (10)
  - Seizure [Unknown]
  - Viral infection [Unknown]
  - Diarrhoea [Unknown]
  - Behaviour disorder [Unknown]
  - Dysphagia [Unknown]
  - Agitation [Unknown]
  - Bronchitis [Unknown]
  - Middle ear effusion [Unknown]
  - Drug ineffective [Unknown]
  - Product dose omission issue [Unknown]
